FAERS Safety Report 18978806 (Version 8)
Quarter: 2022Q1

REPORT INFORMATION
  Report Type: Spontaneous
  Country: CA (occurrence: CA)
  Receive Date: 20210308
  Receipt Date: 20220331
  Transmission Date: 20220424
  Serious: Yes (Life-Threatening, Hospitalization, Other)
  Sender: FDA-Public Use
  Company Number: CA-TAKEDA-2021TUS009025

PATIENT
  Age: 85 Year
  Sex: Female

DRUGS (58)
  1. ENBREL [Suspect]
     Active Substance: ETANERCEPT
     Indication: Product used for unknown indication
     Dosage: UNK
     Route: 065
     Dates: start: 2019, end: 2020
  2. PANTOPRAZOLE [Suspect]
     Active Substance: PANTOPRAZOLE
     Indication: Product used for unknown indication
     Dosage: UNK UNK, QD
     Route: 065
  3. PANTOPRAZOLE [Suspect]
     Active Substance: PANTOPRAZOLE
     Dosage: UNK UNK, QD
     Route: 065
  4. PANTOPRAZOLE [Suspect]
     Active Substance: PANTOPRAZOLE
     Dosage: UNK UNK, QD
     Route: 065
  5. PANTOPRAZOLE [Suspect]
     Active Substance: PANTOPRAZOLE
     Dosage: UNK UNK, QD
     Route: 065
  6. PANTOPRAZOLE [Suspect]
     Active Substance: PANTOPRAZOLE
     Dosage: UNK
     Route: 048
  7. PANTOPRAZOLE [Suspect]
     Active Substance: PANTOPRAZOLE
     Dosage: UNK UNK, QD
     Route: 048
  8. PANTOPRAZOLE [Suspect]
     Active Substance: PANTOPRAZOLE
     Dosage: UNK UNK, QD
     Route: 048
  9. PANTOPRAZOLE [Suspect]
     Active Substance: PANTOPRAZOLE
     Dosage: UNK UNK, QD
     Route: 048
  10. PANTOPRAZOLE [Suspect]
     Active Substance: PANTOPRAZOLE
     Dosage: UNK UNK, QD
     Route: 065
  11. AMLODIPINE BESYLATE [Suspect]
     Active Substance: AMLODIPINE BESYLATE
     Indication: Product used for unknown indication
     Dosage: UNK
     Route: 065
  12. ATORVASTATIN CALCIUM [Suspect]
     Active Substance: ATORVASTATIN CALCIUM
     Indication: Product used for unknown indication
     Dosage: UNK UNK, QD
     Route: 065
  13. ATORVASTATIN CALCIUM [Suspect]
     Active Substance: ATORVASTATIN CALCIUM
     Dosage: UNK UNK, QD
     Route: 065
  14. ATORVASTATIN CALCIUM [Suspect]
     Active Substance: ATORVASTATIN CALCIUM
     Dosage: UNK
     Route: 065
  15. ATORVASTATIN CALCIUM [Suspect]
     Active Substance: ATORVASTATIN CALCIUM
     Dosage: UNK
     Route: 065
  16. ATORVASTATIN CALCIUM [Suspect]
     Active Substance: ATORVASTATIN CALCIUM
     Dosage: UNK
     Route: 065
  17. ATORVASTATIN CALCIUM [Suspect]
     Active Substance: ATORVASTATIN CALCIUM
     Dosage: UNK
     Route: 065
  18. ATORVASTATIN CALCIUM [Suspect]
     Active Substance: ATORVASTATIN CALCIUM
     Dosage: UNK
     Route: 065
  19. ATORVASTATIN CALCIUM [Suspect]
     Active Substance: ATORVASTATIN CALCIUM
     Dosage: UNK
     Route: 065
  20. LYRICA [Suspect]
     Active Substance: PREGABALIN
     Indication: Product used for unknown indication
     Dosage: UNK UNK, BID
     Route: 048
  21. LYRICA [Suspect]
     Active Substance: PREGABALIN
     Dosage: UNK UNK, BID
     Route: 048
  22. LYRICA [Suspect]
     Active Substance: PREGABALIN
     Dosage: UNK UNK, BID
     Route: 065
  23. LYRICA [Suspect]
     Active Substance: PREGABALIN
     Dosage: UNK UNK, BID
     Route: 065
  24. LYRICA [Suspect]
     Active Substance: PREGABALIN
     Dosage: UNK UNK, BID
     Route: 048
  25. SYNTHROID [Suspect]
     Active Substance: LEVOTHYROXINE SODIUM
     Indication: Product used for unknown indication
     Dosage: UNK UNK, QD
     Route: 048
  26. SYNTHROID [Suspect]
     Active Substance: LEVOTHYROXINE SODIUM
     Dosage: UNK UNK, QD
     Route: 048
  27. SYNTHROID [Suspect]
     Active Substance: LEVOTHYROXINE SODIUM
     Dosage: UNK UNK, QD
     Route: 065
  28. SYNTHROID [Suspect]
     Active Substance: LEVOTHYROXINE SODIUM
     Dosage: UNK UNK, QD
     Route: 065
  29. SYNTHROID [Suspect]
     Active Substance: LEVOTHYROXINE SODIUM
     Dosage: UNK UNK, QD
     Route: 048
  30. ACETAMINOPHEN\CODEINE PHOSPHATE [Suspect]
     Active Substance: ACETAMINOPHEN\CODEINE PHOSPHATE
     Indication: Product used for unknown indication
     Dosage: UNK UNK, TID
     Route: 065
  31. ACETAMINOPHEN\CODEINE PHOSPHATE [Suspect]
     Active Substance: ACETAMINOPHEN\CODEINE PHOSPHATE
     Dosage: UNK UNK, TID
     Route: 065
  32. ASPIRIN [Suspect]
     Active Substance: ASPIRIN
     Indication: Product used for unknown indication
     Dosage: UNK
     Route: 065
  33. INDOMETHACIN [Suspect]
     Active Substance: INDOMETHACIN
     Indication: Rheumatoid arthritis
     Dosage: UNK
     Route: 065
  34. DARIFENACIN HYDROBROMIDE [Suspect]
     Active Substance: DARIFENACIN HYDROBROMIDE
     Indication: Product used for unknown indication
     Dosage: UNK
     Route: 048
  35. FERROUS FUMARATE [Suspect]
     Active Substance: FERROUS FUMARATE
     Indication: Product used for unknown indication
     Dosage: UNK
     Route: 065
  36. MICARDIS [Suspect]
     Active Substance: TELMISARTAN
     Indication: Product used for unknown indication
     Dosage: UNK UNK, QD
     Route: 065
  37. MICARDIS [Suspect]
     Active Substance: TELMISARTAN
     Dosage: UNK UNK, QD
     Route: 065
  38. MICARDIS [Suspect]
     Active Substance: TELMISARTAN
     Dosage: UNK UNK, QD
     Route: 065
  39. MICARDIS [Suspect]
     Active Substance: TELMISARTAN
     Dosage: UNK UNK, QD
     Route: 065
  40. ORENCIA [Suspect]
     Active Substance: ABATACEPT
     Indication: Product used for unknown indication
     Dosage: UNK
     Route: 065
     Dates: start: 202008, end: 202008
  41. SENOKOT [Suspect]
     Active Substance: SENNOSIDES
     Indication: Product used for unknown indication
     Dosage: UNK UNK, QD
     Route: 048
  42. SENOKOT [Suspect]
     Active Substance: SENNOSIDES
     Dosage: UNK UNK, QD
     Route: 048
  43. SIMPONI [Suspect]
     Active Substance: GOLIMUMAB
     Indication: Product used for unknown indication
     Dosage: UNK
     Route: 065
     Dates: end: 202007
  44. COBAMAMIDE [Suspect]
     Active Substance: COBAMAMIDE
     Indication: Product used for unknown indication
     Dosage: UNK UNK, QD
     Route: 048
  45. COBAMAMIDE [Suspect]
     Active Substance: COBAMAMIDE
     Dosage: UNK UNK, QD
     Route: 048
  46. ALFUZOSIN [Suspect]
     Active Substance: ALFUZOSIN
     Indication: Product used for unknown indication
     Dosage: UNK
     Route: 048
  47. ATIVAN [Suspect]
     Active Substance: LORAZEPAM
     Indication: Product used for unknown indication
     Dosage: UNK UNK, QD
     Route: 065
  48. ATIVAN [Suspect]
     Active Substance: LORAZEPAM
     Dosage: UNK UNK, QD
     Route: 065
  49. ATIVAN [Suspect]
     Active Substance: LORAZEPAM
     Dosage: UNK
     Route: 065
  50. ATIVAN [Suspect]
     Active Substance: LORAZEPAM
     Dosage: UNK UNK, QD
     Route: 065
  51. ATORVASTATIN [Suspect]
     Active Substance: ATORVASTATIN
     Indication: Product used for unknown indication
     Dosage: UNK UNK, QD
     Route: 065
  52. COBAMAMIDE [Suspect]
     Active Substance: COBAMAMIDE
     Indication: Product used for unknown indication
     Dosage: UNK UNK, QD
     Route: 048
  53. LEVOTHYROXINE SODIUM [Suspect]
     Active Substance: LEVOTHYROXINE SODIUM
     Indication: Product used for unknown indication
     Dosage: UNK UNK, QD
     Route: 065
  54. LIPITOR [Suspect]
     Active Substance: ATORVASTATIN CALCIUM
     Indication: Product used for unknown indication
     Dosage: UNK UNK, QD
     Route: 065
  55. LORAZEPAM [Suspect]
     Active Substance: LORAZEPAM
     Indication: Product used for unknown indication
     Route: 065
  56. PANTOPRAZOLE SODIUM [Suspect]
     Active Substance: PANTOPRAZOLE SODIUM
     Indication: Product used for unknown indication
     Dosage: UNK UNK, QD
     Route: 048
  57. PREGABALIN [Suspect]
     Active Substance: PREGABALIN
     Indication: Product used for unknown indication
     Dosage: UNK UNK, BID
     Route: 065
  58. TELMISARTAN [Suspect]
     Active Substance: TELMISARTAN
     Indication: Product used for unknown indication
     Dosage: UNK UNK, QD
     Route: 065

REACTIONS (19)
  - Back pain [Unknown]
  - Dementia [Unknown]
  - Fall [Unknown]
  - Neuralgia [Unknown]
  - Respiratory failure [Unknown]
  - Synovitis [Unknown]
  - Arthralgia [Unknown]
  - Fatigue [Unknown]
  - Sleep disorder [Unknown]
  - Neuralgia [Unknown]
  - Spinal stenosis [Unknown]
  - Intervertebral disc protrusion [Unknown]
  - Thyroid disorder [Unknown]
  - Joint swelling [Unknown]
  - Hypersensitivity [Unknown]
  - Drug hypersensitivity [Unknown]
  - Drug ineffective [Unknown]
  - Pneumonia [Unknown]
  - Adverse reaction [Unknown]
